FAERS Safety Report 20168790 (Version 2)
Quarter: 2021Q4

REPORT INFORMATION
  Report Type: Spontaneous
  Country: KR (occurrence: KR)
  Receive Date: 20211210
  Receipt Date: 20211219
  Transmission Date: 20220304
  Serious: Yes (Other)
  Sender: FDA-Public Use
  Company Number: KR-AMGEN-KORSP2021194055

PATIENT

DRUGS (1)
  1. EVENITY [Suspect]
     Active Substance: ROMOSOZUMAB-AQQG
     Indication: Osteoporosis postmenopausal
     Route: 065

REACTIONS (11)
  - Atrial fibrillation [Unknown]
  - Femur fracture [Unknown]
  - Clavicle fracture [Unknown]
  - Spinal fracture [Unknown]
  - Cerebral infarction [Unknown]
  - Therapeutic product effect incomplete [Unknown]
  - Chest pain [Unknown]
  - Coronary artery disease [Unknown]
  - Palpitations [Unknown]
  - Erythema [Unknown]
  - Hypocalcaemia [Unknown]
